FAERS Safety Report 16740481 (Version 5)
Quarter: 2021Q1

REPORT INFORMATION
  Report Type: Spontaneous
  Country: US (occurrence: US)
  Receive Date: 20190826
  Receipt Date: 20210112
  Transmission Date: 20210419
  Serious: Yes (Other)
  Sender: FDA-Public Use
  Company Number: US-PFIZER INC-2019358951

PATIENT
  Age: 59 Year
  Sex: Male

DRUGS (5)
  1. LYRICA [Suspect]
     Active Substance: PREGABALIN
     Indication: POLYNEUROPATHY
     Dosage: 100 MG, DAILY, ONCE A DAY
     Route: 048
  2. LYRICA [Suspect]
     Active Substance: PREGABALIN
     Indication: MONONEUROPATHY
  3. CYMBALTA [Concomitant]
     Active Substance: DULOXETINE HYDROCHLORIDE
     Dosage: 30 MG, DAILY
  4. PREDNISONE. [Concomitant]
     Active Substance: PREDNISONE
     Dosage: 10 MG, DAILY (5 MG QAM (EVERY MORNING) AND 5 MG QPM (EVERY EVENING))
  5. LYRICA [Suspect]
     Active Substance: PREGABALIN
     Indication: NEUROPATHY PERIPHERAL

REACTIONS (11)
  - Polymyalgia rheumatica [Unknown]
  - Headache [Unknown]
  - Sensory disturbance [Unknown]
  - Stiff person syndrome [Unknown]
  - Vomiting [Unknown]
  - Diarrhoea [Unknown]
  - Hyperhidrosis [Unknown]
  - Drug withdrawal syndrome [Unknown]
  - Chills [Unknown]
  - Chondrocalcinosis pyrophosphate [Not Recovered/Not Resolved]
  - Nausea [Unknown]
